FAERS Safety Report 4286564-X (Version None)
Quarter: 2004Q1

REPORT INFORMATION
  Report Type: 
  Country: None (occurrence: None)
  Receive Date: 20040204
  Receipt Date: 20040127
  Transmission Date: 20041129
  Serious: Yes (Hospitalization)
  Sender: FDA-Public Use
  Company Number: EM2004-0046

PATIENT
  Age: 62 Year
  Sex: Male
  Weight: 80.4 kg

DRUGS (2)
  1. PROLEUKIN [Suspect]
     Indication: RENAL CELL CARCINOMA STAGE UNSPECIFIED
     Dosage: 3.6 MIU/M2, QD, SUBCUTAN.
     Route: 058
     Dates: start: 20040105, end: 20040110
  2. ZOMETA [Suspect]
     Indication: RENAL CELL CARCINOMA STAGE UNSPECIFIED
     Dosage: 4 MG, QM, INTRAVENOUS
     Route: 042
     Dates: start: 20040105

REACTIONS (3)
  - ASCITES [None]
  - BLOOD CREATININE INCREASED [None]
  - GENERALISED OEDEMA [None]
